FAERS Safety Report 6288694-X (Version None)
Quarter: 2009Q3

REPORT INFORMATION
  Report Type: 
  Country: None (occurrence: None)
  Receive Date: 20090727
  Receipt Date: 20090713
  Transmission Date: 20100115
  Serious: Yes (Other)
  Sender: FDA-Public Use
  Company Number: ADE2009-0738

PATIENT
  Age: 60 Year
  Sex: Female
  Weight: 61 kg

DRUGS (5)
  1. SERTRALINE [Suspect]
     Indication: DEPRESSION
     Dosage: 50 MG, DAILY;
     Dates: start: 20090216, end: 20090404
  2. LEVOTHYROXINE [Concomitant]
  3. OLMESARTAN MEDOXOMIL [Concomitant]
  4. ASPIRIN [Concomitant]
  5. SOLUBLE INSULIN [Concomitant]

REACTIONS (1)
  - GRAND MAL CONVULSION [None]
